FAERS Safety Report 10021099 (Version 2)
Quarter: 2014Q2

REPORT INFORMATION
  Report Type: Spontaneous
  Country: US (occurrence: US)
  Receive Date: 20140319
  Receipt Date: 20140421
  Transmission Date: 20141212
  Serious: No
  Sender: FDA-Public Use
  Company Number: US-PFIZER INC-2014076441

PATIENT
  Sex: Female

DRUGS (2)
  1. LYRICA [Suspect]
     Indication: CONVULSION
     Dosage: UNK
  2. LYRICA [Suspect]
     Dosage: 300 MG, 1X/DAY

REACTIONS (3)
  - Drug effect incomplete [Unknown]
  - Weight increased [Unknown]
  - Therapeutic response changed [Unknown]
